FAERS Safety Report 22215963 (Version 1)
Quarter: 2023Q2

REPORT INFORMATION
  Report Type: Spontaneous
  Country: US (occurrence: US)
  Receive Date: 20230417
  Receipt Date: 20230417
  Transmission Date: 20230721
  Serious: Yes (Hospitalization, Other)
  Sender: FDA-Public Use
  Company Number: US-BRISTOL-MYERS SQUIBB COMPANY-2023-050471

PATIENT
  Age: 82 Year
  Sex: Male

DRUGS (1)
  1. ONUREG [Suspect]
     Active Substance: AZACITIDINE
     Indication: Acute myeloid leukaemia
     Dosage: QD 7D ON 21D OFF
     Route: 048

REACTIONS (4)
  - Platelet count decreased [Unknown]
  - Haemorrhage [Unknown]
  - Respiratory tract infection [Unknown]
  - Asthenia [Unknown]
